FAERS Safety Report 6404619-8 (Version None)
Quarter: 2009Q4

REPORT INFORMATION
  Report Type: 
  Country: None (occurrence: None)
  Receive Date: 20091016
  Receipt Date: 20091006
  Transmission Date: 20100525
  Serious: Yes (Hospitalization, Other)
  Sender: FDA-Public Use
  Company Number: US-CELGENEUS-163-21880-09100521

PATIENT
  Age: 78 Year
  Sex: Male
  Weight: 62 kg

DRUGS (15)
  1. REVLIMID [Suspect]
     Route: 048
     Dates: start: 20090617, end: 20090630
  2. RITUXIMAB [Suspect]
     Route: 051
     Dates: start: 20090701, end: 20090708
  3. VALTREX [Concomitant]
     Indication: DRUG USE FOR UNKNOWN INDICATION
     Route: 048
     Dates: start: 20090512, end: 20090705
  4. ALLOPURINOL [Concomitant]
     Indication: DRUG USE FOR UNKNOWN INDICATION
     Route: 065
     Dates: start: 20090512, end: 20090705
  5. GLUCOTROL [Concomitant]
     Indication: DRUG USE FOR UNKNOWN INDICATION
     Route: 048
     Dates: start: 20090511, end: 20090705
  6. ACYCLOVIR [Concomitant]
     Indication: DRUG USE FOR UNKNOWN INDICATION
     Route: 065
     Dates: start: 20090201
  7. VITAMIN K TAB [Concomitant]
     Route: 048
     Dates: start: 20090701
  8. IMMUNE GLOBULIN INTRAVENOUS (HUMAN) [Concomitant]
     Route: 051
     Dates: start: 20090701
  9. ALBUMIN (HUMAN) [Concomitant]
     Indication: DRUG USE FOR UNKNOWN INDICATION
     Route: 041
     Dates: start: 20090722
  10. ALBUMIN (HUMAN) [Concomitant]
     Route: 051
     Dates: start: 20090727
  11. LASIX [Concomitant]
     Indication: DRUG USE FOR UNKNOWN INDICATION
     Route: 041
     Dates: start: 20090701
  12. LASIX [Concomitant]
     Route: 048
     Dates: start: 20090801
  13. NEUPOGEN [Concomitant]
     Indication: DRUG USE FOR UNKNOWN INDICATION
     Route: 058
     Dates: start: 20090803
  14. MIRALAX [Concomitant]
     Indication: CONSTIPATION
     Route: 048
     Dates: start: 20090801
  15. TESSALON [Concomitant]
     Indication: COUGH
     Route: 048
     Dates: start: 20090801

REACTIONS (11)
  - ABDOMINAL DISTENSION [None]
  - ANAEMIA [None]
  - BACTERAEMIA [None]
  - CYTOMEGALOVIRUS INFECTION [None]
  - GASTROINTESTINAL HAEMORRHAGE [None]
  - HAEMATURIA [None]
  - HYPOGLYCAEMIA [None]
  - LOCALISED OEDEMA [None]
  - PLEURAL EFFUSION [None]
  - PNEUMONIA [None]
  - THROMBOCYTOPENIA [None]
